FAERS Safety Report 5098961-3 (Version None)
Quarter: 2006Q3

REPORT INFORMATION
  Report Type: 
  Country: None (occurrence: None)
  Receive Date: 20060907
  Receipt Date: 20060829
  Transmission Date: 20061208
  Serious: Yes (Death)
  Sender: FDA-Public Use
  Company Number: 2006UW17451

PATIENT
  Age: 3 Year
  Sex: Male

DRUGS (1)
  1. DIPRIVAN [Suspect]
     Route: 042

REACTIONS (1)
  - DEATH [None]
